FAERS Safety Report 8147797-5 (Version None)
Quarter: 2012Q1

REPORT INFORMATION
  Report Type: 
  Country: None (occurrence: None)
  Receive Date: 20120218
  Receipt Date: 20110321
  Transmission Date: 20120608
  Serious: No
  Sender: FDA-Public Use
  Company Number: US-ALLERGAN-1103952US

PATIENT
  Age: 45 Year
  Sex: Female
  Weight: 54.422 kg

DRUGS (2)
  1. MELOXICAM [Concomitant]
     Indication: ARTHRALGIA
     Dosage: 7.5 MG, QD
     Route: 048
  2. BOTULINUM TOXIN TYPE A [Suspect]
     Indication: MIGRAINE
     Dosage: 190 UNITS, SINGLE
     Dates: start: 20101215, end: 20101215

REACTIONS (2)
  - MUSCULOSKELETAL STIFFNESS [None]
  - DYSPHAGIA [None]
